FAERS Safety Report 5754081-3 (Version None)
Quarter: 2008Q2

REPORT INFORMATION
  Report Type: 
  Country: None (occurrence: None)
  Receive Date: 20080530
  Receipt Date: 20080523
  Transmission Date: 20081010
  Serious: Yes (Other)
  Sender: FDA-Public Use
  Company Number: PHEH2008US03598

PATIENT
  Sex: Female

DRUGS (3)
  1. GENTEAL PM LUBRICANT EYE OINTMENT [Suspect]
     Indication: DRY EYE
     Dosage: UNK, UNK
     Dates: start: 20070901, end: 20080408
  2. GENTEAL PM LUBRICANT EYE OINTMENT [Suspect]
     Indication: KERATOCONJUNCTIVITIS SICCA
  3. RESTASIS [Concomitant]

REACTIONS (6)
  - CONJUNCTIVAL OEDEMA [None]
  - EYE IRRITATION [None]
  - EYE PAIN [None]
  - KERATOCONJUNCTIVITIS SICCA [None]
  - OCULAR HYPERAEMIA [None]
  - PUNCTATE KERATITIS [None]
